FAERS Safety Report 8462601 (Version 5)
Quarter: 2013Q2

REPORT INFORMATION
  Report Type: Spontaneous
  Country: US (occurrence: US)
  Receive Date: 20120316
  Receipt Date: 20130619
  Transmission Date: 20140414
  Serious: Yes (Hospitalization, Other)
  Sender: FDA-Public Use
  Company Number: US-ELI_LILLY_AND_COMPANY-US201203001585

PATIENT
  Age: 65 Year
  Sex: Female

DRUGS (16)
  1. FORTEO [Suspect]
     Indication: OSTEOPOROSIS
     Dosage: 20 UG, QD
     Route: 065
     Dates: start: 20120220
  2. FORTEO [Suspect]
     Dosage: 20 UG, QD
     Dates: start: 20120220
  3. FORTEO [Suspect]
     Dosage: 20 UG, QD
     Dates: start: 20120220, end: 20120608
  4. FORTEO [Suspect]
     Dosage: 20 UG, QD
     Dates: start: 20120220
  5. HYDROCODONE [Concomitant]
     Indication: PAIN
     Dosage: 1 DF, PRN UP TO EVERY 4 HOUR
  6. METOPROLOL [Concomitant]
     Dosage: 25 MG, QD
  7. CELEXA [Concomitant]
     Dosage: 20 MG, QD
  8. WARFARIN [Concomitant]
     Dosage: 7.5 MG, QD
  9. RELPAX [Concomitant]
     Indication: MIGRAINE
     Dosage: 40 MG, PRN
  10. TOPIRAMATE [Concomitant]
     Dosage: 1 DF, QD
  11. CALCIUM [Concomitant]
     Dosage: 1400 MG, TID
  12. MULTIVITAMIN [Concomitant]
  13. VITAMIN D NOS [Concomitant]
  14. IRON [Concomitant]
     Dosage: 325 MG, QD
  15. B12 [Concomitant]
     Dosage: 2500 UG, QD
  16. PROTEINS NOS [Concomitant]
     Dosage: UNK, 4/W

REACTIONS (9)
  - Abdominal strangulated hernia [Recovering/Resolving]
  - Sepsis [Unknown]
  - Abdominal wall disorder [Recovering/Resolving]
  - Pain [Recovering/Resolving]
  - Injection site bruising [Not Recovered/Not Resolved]
  - Injection site induration [Unknown]
  - Injection site streaking [Recovered/Resolved]
  - Injection site bruising [Recovered/Resolved]
  - Injection site rash [Unknown]
